FAERS Safety Report 7798368-1 (Version None)
Quarter: 2011Q4

REPORT INFORMATION
  Report Type: 
  Country: None (occurrence: None)
  Receive Date: 20111005
  Receipt Date: 20110929
  Transmission Date: 20120403
  Serious: Yes (Other)
  Sender: FDA-Public Use
  Company Number: US-PFIZER INC-2011233562

PATIENT
  Sex: Male

DRUGS (4)
  1. TRAVATAN Z [Suspect]
     Indication: GLAUCOMA
     Dosage: UNK
     Dates: start: 20110831
  2. TRAVATAN Z [Suspect]
     Dosage: UNK
     Dates: start: 20110901
  3. LATANOPROST [Suspect]
     Dosage: UNK
     Dates: start: 20110901, end: 20110901
  4. LATANOPROST [Suspect]
     Indication: GLAUCOMA
     Dosage: UNK
     Dates: start: 20110602

REACTIONS (3)
  - OCULAR HYPERAEMIA [None]
  - DRUG INEFFECTIVE [None]
  - INTRAOCULAR PRESSURE INCREASED [None]
